FAERS Safety Report 8212045-4 (Version None)
Quarter: 2012Q1

REPORT INFORMATION
  Report Type: 
  Country: None (occurrence: None)
  Receive Date: 20120315
  Receipt Date: 20120305
  Transmission Date: 20120608
  Serious: Yes (Hospitalization, Disabling, Other)
  Sender: FDA-Public Use
  Company Number: PHHY2012LB016058

PATIENT
  Age: 68 Year
  Sex: Male
  Weight: 106 kg

DRUGS (1)
  1. TASIGNA [Suspect]
     Indication: CHRONIC MYELOID LEUKAEMIA
     Dosage: 400 MG, BID
     Route: 048
     Dates: start: 20110629

REACTIONS (9)
  - ARRHYTHMIA [None]
  - CHEST DISCOMFORT [None]
  - GASTROINTESTINAL HAEMORRHAGE [None]
  - DYSPNOEA [None]
  - ABDOMINAL PAIN UPPER [None]
  - ELECTROCARDIOGRAM QT PROLONGED [None]
  - FATIGUE [None]
  - LIPASE INCREASED [None]
  - AMYLASE INCREASED [None]
